FAERS Safety Report 11184874 (Version 2)
Quarter: 2015Q3

REPORT INFORMATION
  Report Type: Spontaneous
  Country: PT (occurrence: PT)
  Receive Date: 20150612
  Receipt Date: 20150727
  Transmission Date: 20151125
  Serious: Yes (Other)
  Sender: FDA-Public Use
  Company Number: PT-BIAL, PORTELA + CA S.A.-BIAL-02966

PATIENT
  Age: 54 Year
  Sex: Female

DRUGS (5)
  1. GABAPENTINA RATIOPHARM [Concomitant]
     Indication: TRIGEMINAL NEURALGIA
     Dosage: UNK
     Dates: start: 20150129, end: 20150219
  2. ZEBINIX (ESLICARBAZEPINE ACETATE) [Suspect]
     Active Substance: ESLICARBAZEPINE ACETATE
     Indication: TRIGEMINAL NEURALGIA
     Dosage: 800 MG, 1X / DAY
     Route: 048
     Dates: start: 20150129, end: 20150219
  3. INDOMETACINA [Concomitant]
     Indication: TRIGEMINAL NEURALGIA
     Dosage: 75 MG, UNKNOWN
     Route: 048
     Dates: start: 20150129, end: 20150208
  4. IRBESARTAN AND HIDROCLOROTIAZIDA [Concomitant]
     Indication: HYPERTENSION
     Dosage: 300MG + 12,5MG, 1X / DAY
     Route: 048
     Dates: start: 20150209, end: 20150216
  5. AMLODIPINE W/LISINOPRIL [Concomitant]
     Indication: HYPERTENSION
     Dosage: 5MG + 20MG, 1X / DAY
     Route: 048
     Dates: start: 20150202, end: 20150208

REACTIONS (6)
  - Off label use [Unknown]
  - Skin test positive [Unknown]
  - Eosinophilia [Unknown]
  - Oedema peripheral [Recovered/Resolved]
  - Rash generalised [Recovered/Resolved]
  - Face oedema [Recovered/Resolved]

NARRATIVE: CASE EVENT DATE: 20150129
